FAERS Safety Report 24346344 (Version 2)
Quarter: 2024Q3

REPORT INFORMATION
  Report Type: Spontaneous
  Country: US (occurrence: US)
  Receive Date: 20240921
  Receipt Date: 20240930
  Transmission Date: 20241017
  Serious: No
  Sender: ROCHE
  Company Number: US-ROCHE-10000081756

PATIENT
  Age: 2 Year
  Sex: Female
  Weight: 11.34 kg

DRUGS (4)
  1. XOLAIR [Suspect]
     Active Substance: OMALIZUMAB
     Indication: Food allergy
     Dosage: MOST RECENT DOSE WAS GIVEN ON 10/SEP/2024
     Route: 058
     Dates: start: 20240715
  2. ALBUTEROL [Concomitant]
     Active Substance: ALBUTEROL
     Indication: Asthma
     Dosage: 2.5 MCG SOLUTION
     Route: 055
     Dates: start: 20240304
  3. CHILDRENS ZYRTEC [Concomitant]
     Active Substance: CETIRIZINE HYDROCHLORIDE
     Indication: Hypersensitivity
     Route: 048
     Dates: start: 20240304
  4. HYDROCORTISONE [Concomitant]
     Active Substance: HYDROCORTISONE\HYDROCORTISONE ACETATE
     Indication: Pruritus
     Route: 061
     Dates: start: 20240611

REACTIONS (1)
  - Arthralgia [Recovered/Resolved]
